FAERS Safety Report 17478591 (Version 1)
Quarter: 2020Q1

REPORT INFORMATION
  Report Type: Spontaneous
  Country: NL (occurrence: NL)
  Receive Date: 20200228
  Receipt Date: 20200228
  Transmission Date: 20200409
  Serious: Yes (Hospitalization)
  Sender: FDA-Public Use
  Company Number: NL-MYLANLABS-2020M1021506

PATIENT
  Sex: Female
  Weight: 60.5 kg

DRUGS (5)
  1. DUSPATAL                           /00139402/ [Concomitant]
     Dosage: UNK
  2. CLOPIDOGREL [Concomitant]
     Active Substance: CLOPIDOGREL BISULFATE
     Dosage: UNK
  3. METOPROLOL. [Suspect]
     Active Substance: METOPROLOL
     Indication: ARRHYTHMIA
     Dosage: 12 MILLIGRAM, BID(12,5 MG, 2X DGS, HALVE VAN 25MG)
     Dates: start: 201912
  4. RAMIPRIL. [Concomitant]
     Active Substance: RAMIPRIL
     Dosage: UNK
  5. ASCAL                              /00800002/ [Concomitant]
     Active Substance: CARBASPIRIN
     Dosage: UNK

REACTIONS (1)
  - Hyponatraemia [Unknown]
